FAERS Safety Report 5507282-3 (Version None)
Quarter: 2007Q4

REPORT INFORMATION
  Report Type: 
  Country: None (occurrence: None)
  Receive Date: 20071106
  Receipt Date: 20071031
  Transmission Date: 20080405
  Serious: Yes (Other)
  Sender: FDA-Public Use
  Company Number: PHEH2007US14304

PATIENT
  Sex: Male

DRUGS (2)
  1. ZOMETA [Suspect]
     Indication: METASTASES TO BONE
     Dates: start: 20040701
  2. AREDIA [Suspect]
     Indication: METASTASES TO BONE
     Dates: start: 20040701

REACTIONS (6)
  - ANXIETY [None]
  - BONE DISORDER [None]
  - DEFORMITY [None]
  - EMOTIONAL DISTRESS [None]
  - OSTEONECROSIS [None]
  - PAIN [None]
